FAERS Safety Report 7876935-4 (Version None)
Quarter: 2011Q4

REPORT INFORMATION
  Report Type: 
  Country: None (occurrence: None)
  Receive Date: 20111031
  Receipt Date: 20111025
  Transmission Date: 20120403
  Serious: Yes (Disabling, Other)
  Sender: FDA-Public Use
  Company Number: US-SANOFI-AVENTIS-2011SA070454

PATIENT
  Sex: Male

DRUGS (4)
  1. LANTUS [Suspect]
     Indication: TYPE 2 DIABETES MELLITUS
     Dosage: DOSE:65 UNIT(S)
     Route: 058
     Dates: start: 20060101
  2. ANTIHYPERTENSIVES [Concomitant]
  3. GLYBURIDE [Concomitant]
  4. INSULIN [Concomitant]

REACTIONS (2)
  - INTERVERTEBRAL DISC DISORDER [None]
  - NASOPHARYNGITIS [None]
